FAERS Safety Report 25178788 (Version 2)
Quarter: 2025Q2

REPORT INFORMATION
  Report Type: Spontaneous
  Country: JP (occurrence: JP)
  Receive Date: 20250409
  Receipt Date: 20250605
  Transmission Date: 20250717
  Serious: Yes (Hospitalization, Other)
  Sender: MERCK SHARP & DOHME LLC
  Company Number: JP-MSD-M2024-32740

PATIENT
  Age: 92 Year
  Sex: Male
  Weight: 34.2 kg

DRUGS (1)
  1. LAGEVRIO [Suspect]
     Active Substance: MOLNUPIRAVIR
     Indication: COVID-19 treatment
     Dosage: DOSE DESCRIPTION : 800 MILLIGRAM, BID?DAILY DOSE : 1600 MILLIGRAM?REGIMEN DOSE : 8000  MILLIGRAM
     Route: 048
     Dates: start: 20240810, end: 20240814

REACTIONS (3)
  - COVID-19 pneumonia [Recovering/Resolving]
  - Pneumonia bacterial [Recovered/Resolved]
  - Drug ineffective [Unknown]

NARRATIVE: CASE EVENT DATE: 20240801
